FAERS Safety Report 10353900 (Version 1)
Quarter: 2014Q3

REPORT INFORMATION
  Report Type: Spontaneous
  Country: US (occurrence: US)
  Receive Date: 20140731
  Receipt Date: 20140731
  Transmission Date: 20150326
  Serious: Yes (Death)
  Sender: FDA-Public Use
  Company Number: US-PURDUE-USA-2014-0116108

PATIENT
  Age: 58 Year
  Sex: Female

DRUGS (2)
  1. SERTRALINE /01011402/ [Suspect]
     Active Substance: SERTRALINE HYDROCHLORIDE
  2. TRAMADOL (SIMILAR TO NDA 21-745) [Suspect]
     Active Substance: TRAMADOL

REACTIONS (2)
  - Victim of homicide [Fatal]
  - Overdose [Fatal]

NARRATIVE: CASE EVENT DATE: 20130925
